FAERS Safety Report 22158092 (Version 1)
Quarter: 2023Q1

REPORT INFORMATION
  Report Type: Report from Study
  Country: JP (occurrence: JP)
  Receive Date: 20230330
  Receipt Date: 20230330
  Transmission Date: 20230418
  Serious: Yes (Death, Life-Threatening, Other)
  Sender: FDA-Public Use
  Company Number: JP-SAKK-2022SA236649AA

PATIENT
  Age: 3 Year
  Sex: Male
  Weight: 17 kg

DRUGS (8)
  1. ALEMTUZUMAB [Suspect]
     Active Substance: ALEMTUZUMAB
     Indication: Allogenic stem cell transplantation
     Dosage: 0.16 MG/KG
     Route: 041
     Dates: start: 20220410, end: 20220413
  2. BUSULFEX [Suspect]
     Active Substance: BUSULFAN
     Indication: Allogenic stem cell transplantation
     Dosage: 78 MG, QD (AUC 60 MG/HR/L)
     Route: 042
     Dates: start: 20220414, end: 20220417
  3. TACROLIMUS [Suspect]
     Active Substance: TACROLIMUS
     Indication: Prophylaxis against graft versus host disease
     Dosage: 400 UG, QD
     Route: 042
     Dates: start: 20220421
  4. TACROLIMUS [Suspect]
     Active Substance: TACROLIMUS
     Indication: Prophylaxis
  5. FLUDARA [Concomitant]
     Active Substance: FLUDARABINE PHOSPHATE
     Indication: Allogenic stem cell transplantation
     Dosage: 20 MG, QD (30 MG/M2/DAY)
     Route: 042
     Dates: start: 20220414, end: 20220419
  6. CEFAZOLIN SODIUM [Concomitant]
     Active Substance: CEFAZOLIN SODIUM
     Indication: Infection prophylaxis
     Dosage: 570 MG, TID
     Route: 042
  7. VFEND [Concomitant]
     Active Substance: VORICONAZOLE
     Indication: Infection prophylaxis
     Dosage: 140 MG, BID
     Route: 042
  8. METHOTREXATE [Concomitant]
     Active Substance: METHOTREXATE
     Indication: Prophylaxis against graft versus host disease
     Dosage: UNK
     Route: 065
     Dates: start: 2022

REACTIONS (16)
  - Multiple organ dysfunction syndrome [Fatal]
  - Angiopathy [Fatal]
  - Cytokine storm [Fatal]
  - Pulmonary haemorrhage [Fatal]
  - Thrombotic microangiopathy [Unknown]
  - Disseminated intravascular coagulation [Unknown]
  - Renal impairment [Unknown]
  - Coagulopathy [Unknown]
  - Adenovirus infection [Not Recovered/Not Resolved]
  - Haemophagocytic lymphohistiocytosis [Recovering/Resolving]
  - Respiratory disorder [Unknown]
  - Venoocclusive liver disease [Not Recovered/Not Resolved]
  - Pyrexia [Recovered/Resolved]
  - Weight increased [Not Recovered/Not Resolved]
  - Ascites [Not Recovered/Not Resolved]
  - Thrombotic thrombocytopenic purpura [Fatal]

NARRATIVE: CASE EVENT DATE: 20220430
